FAERS Safety Report 14786105 (Version 1)
Quarter: 2018Q2

REPORT INFORMATION
  Report Type: Spontaneous
  Country: US (occurrence: US)
  Receive Date: 20180420
  Receipt Date: 20180420
  Transmission Date: 20180711
  Serious: Yes (Other)
  Sender: FDA-Public Use
  Company Number: US-LUNDBECK-DKLU2047344

PATIENT
  Age: 22 Year
  Sex: Female

DRUGS (1)
  1. SABRIL [Suspect]
     Active Substance: VIGABATRIN
     Indication: EPILEPSY
     Route: 048
     Dates: start: 20160804

REACTIONS (5)
  - Pneumonitis [Unknown]
  - Wheezing [Unknown]
  - Pleural effusion [Unknown]
  - Dyspnoea [Unknown]
  - Multiple allergies [Unknown]

NARRATIVE: CASE EVENT DATE: 201803
